FAERS Safety Report 21688263 (Version 1)
Quarter: 2022Q4

REPORT INFORMATION
  Report Type: Report from Study
  Country: US (occurrence: US)
  Receive Date: 20221206
  Receipt Date: 20221206
  Transmission Date: 20230113
  Serious: No
  Sender: FDA-Public Use
  Company Number: US-ABBVIE-4189020

PATIENT
  Sex: Female

DRUGS (1)
  1. HUMIRA [Suspect]
     Active Substance: ADALIMUMAB
     Indication: Psoriatic arthropathy
     Dosage: THE EVENT ONSET DATE OF EVENT PSORIASIS WAS 2022 AS PER DRUG START DATE
     Route: 058
     Dates: start: 20220513

REACTIONS (1)
  - Psoriasis [Unknown]
